FAERS Safety Report 15452915 (Version 5)
Quarter: 2019Q3

REPORT INFORMATION
  Report Type: Spontaneous
  Country: US (occurrence: US)
  Receive Date: 20181001
  Receipt Date: 20190927
  Transmission Date: 20191004
  Serious: No
  Sender: FDA-Public Use
  Company Number: US-PFIZER INC-2018390617

PATIENT
  Age: 58 Year
  Sex: Female
  Weight: 75.3 kg

DRUGS (8)
  1. LYRICA [Suspect]
     Active Substance: PREGABALIN
     Indication: NEUROPATHY PERIPHERAL
     Dosage: 600 MG, 3X/DAY
     Route: 048
     Dates: start: 201703
  2. LYRICA [Suspect]
     Active Substance: PREGABALIN
     Dosage: 550 MG, DAILY(LYRICA 200 MG AT BREAKFAST, 150 MG AT 3 PM AND 200 MG BEDTIME)
  3. LYRICA [Suspect]
     Active Substance: PREGABALIN
     Indication: ANXIETY
     Dosage: 450 MG, 3X/DAY
     Route: 048
  4. LYRICA [Suspect]
     Active Substance: PREGABALIN
     Dosage: 1150 MG, DAILY (450 MG CAPSULES IN THE MORNING, 350 MG CAPSULES AFTERNOON, 350 MG CAPSULE NIGHT)
     Route: 048
     Dates: start: 20180923
  5. LYRICA [Suspect]
     Active Substance: PREGABALIN
     Dosage: 500 MG, DAILY (LYRICA 200 MG AT BREAKFAST, 150 MG AT 3 PM, AND 150 MG BEDTIME)
     Route: 048
  6. LYRICA [Suspect]
     Active Substance: PREGABALIN
     Dosage: 1050 MG, DAILY (350 MG CAPSULES IN THE MORNING, AFTERNOON AND NIGHT)
     Route: 048
  7. AMITRIPTYLINE [Concomitant]
     Active Substance: AMITRIPTYLINE
     Dosage: UNK
  8. AMITRIPTYLINE [Concomitant]
     Active Substance: AMITRIPTYLINE
     Dosage: UNK (DECREASED BY 10 MG)
     Dates: start: 201703

REACTIONS (9)
  - Weight decreased [Unknown]
  - Overdose [Unknown]
  - Condition aggravated [Not Recovered/Not Resolved]
  - Product use issue [Unknown]
  - Drug ineffective [Unknown]
  - Off label use [Unknown]
  - Feeling abnormal [Not Recovered/Not Resolved]
  - Dry mouth [Not Recovered/Not Resolved]
  - Tinnitus [Not Recovered/Not Resolved]

NARRATIVE: CASE EVENT DATE: 201703
